FAERS Safety Report 5095790-1 (Version None)
Quarter: 2006Q3

REPORT INFORMATION
  Report Type: 
  Country: None (occurrence: None)
  Receive Date: 20060905
  Receipt Date: 20060823
  Transmission Date: 20061208
  Serious: Yes (Hospitalization)
  Sender: FDA-Public Use
  Company Number: FR-BAYER-200610802BFR

PATIENT
  Age: 17 Year
  Sex: Female
  Weight: 55 kg

DRUGS (11)
  1. MOXIFLOXACIN HYDROCHLORIDE [Suspect]
     Indication: TUBERCULOSIS
     Dosage: TOTAL DAILY DOSE: 400 MG  UNIT DOSE: 400 MG
     Route: 048
     Dates: start: 20060518, end: 20060617
  2. MOXIFLOXACIN HYDROCHLORIDE [Suspect]
     Dosage: TOTAL DAILY DOSE: 400 MG  UNIT DOSE: 400 MG
     Route: 048
     Dates: start: 20060717, end: 20060717
  3. AMIKLIN [Concomitant]
     Indication: TUBERCULOSIS
     Route: 030
     Dates: start: 20060518
  4. ETHIONAMIDE [Concomitant]
     Indication: TUBERCULOSIS
     Dates: start: 20060518
  5. PAS (PARA-AMINOSALICYLIC ACID) [Concomitant]
     Indication: UNEVALUABLE EVENT
     Dates: start: 20060518
  6. CYCLOSERINE [Concomitant]
     Indication: TUBERCULOSIS
     Dates: start: 20060518
  7. ZOPHREN [Concomitant]
     Indication: UNEVALUABLE EVENT
     Dates: start: 20060518
  8. DIANTALVIC (PARACETAMOL + DETROPROPOXYPHENE) [Concomitant]
     Indication: UNEVALUABLE EVENT
     Dates: start: 20060518
  9. SERESTA [Concomitant]
     Indication: UNEVALUABLE EVENT
     Dates: start: 20060518
  10. VASTAREL [Concomitant]
     Indication: UNEVALUABLE EVENT
     Dates: start: 20060518
  11. VITAMIN B1 AND B6 [Concomitant]
     Indication: UNEVALUABLE EVENT
     Dates: start: 20060518

REACTIONS (5)
  - ALANINE AMINOTRANSFERASE INCREASED [None]
  - ASPARTATE AMINOTRANSFERASE INCREASED [None]
  - CYTOLYTIC HEPATITIS [None]
  - EOSINOPHILIA [None]
  - PYREXIA [None]
